FAERS Safety Report 16679805 (Version 2)
Quarter: 2019Q3

REPORT INFORMATION
  Report Type: Report from Study
  Country: US (occurrence: US)
  Receive Date: 20190807
  Receipt Date: 20190821
  Transmission Date: 20191004
  Serious: No
  Sender: FDA-Public Use
  Company Number: US-BEH-2019104962

PATIENT
  Age: 57 Year
  Sex: Male

DRUGS (1)
  1. ZEMAIRA [Suspect]
     Active Substance: .ALPHA.1-PROTEINASE INHIBITOR HUMAN
     Route: 065

REACTIONS (2)
  - No adverse event [Unknown]
  - Inability to afford medication [Unknown]
